FAERS Safety Report 7301398-7 (Version None)
Quarter: 2011Q1

REPORT INFORMATION
  Report Type: 
  Country: None (occurrence: None)
  Receive Date: 20110218
  Receipt Date: 20110208
  Transmission Date: 20110831
  Serious: Yes (Hospitalization, Other)
  Sender: FDA-Public Use
  Company Number: PHFR2011GB00771

PATIENT
  Sex: Male

DRUGS (4)
  1. CLOZARIL [Suspect]
     Dosage: 175 MG
     Route: 048
     Dates: start: 20101231
  2. CLOZARIL [Suspect]
     Indication: SCHIZOPHRENIA
     Dosage: UNK
     Route: 048
     Dates: start: 20101214
  3. CLOZARIL [Suspect]
     Dosage: UNK
     Route: 048
  4. CLOZARIL [Suspect]
     Dosage: (50 MG +25 MG) 75 MG, QD
     Route: 048
     Dates: start: 20110121

REACTIONS (2)
  - TACHYCARDIA [None]
  - ELECTROCARDIOGRAM QT PROLONGED [None]
